FAERS Safety Report 5985928-3 (Version None)
Quarter: 2008Q4

REPORT INFORMATION
  Report Type: 
  Country: None (occurrence: None)
  Receive Date: 20081205
  Receipt Date: 20081205
  Transmission Date: 20090506
  Serious: Yes (Hospitalization)
  Sender: FDA-Public Use
  Company Number: None

PATIENT
  Sex: Male
  Weight: 88.4514 kg

DRUGS (11)
  1. DEPAKOTE ER [Suspect]
     Indication: CONVULSION PROPHYLAXIS
     Dosage: 1000 MG HS PO
     Route: 048
     Dates: start: 20071102, end: 20080219
  2. ABILIFY [Concomitant]
  3. MEMANTINE HCL [Concomitant]
  4. LACTULOSE [Concomitant]
  5. PROTONIX [Concomitant]
  6. VASOTEC [Concomitant]
  7. COLACE [Concomitant]
  8. ATIVAN [Concomitant]
  9. FEOSOL [Concomitant]
  10. LAMISIL [Concomitant]
  11. DEPAKOTE ER [Concomitant]

REACTIONS (7)
  - ATAXIA [None]
  - CONFUSIONAL STATE [None]
  - FALL [None]
  - HEMIPARESIS [None]
  - HYPONATRAEMIA [None]
  - REFUSAL OF TREATMENT BY PATIENT [None]
  - SOMNOLENCE [None]
